FAERS Safety Report 5209923-7 (Version None)
Quarter: 2006Q4

REPORT INFORMATION
  Report Type: 
  Country: None (occurrence: None)
  Receive Date: 20061130
  Receipt Date: 20051128
  Transmission Date: 20070319
  Serious: Yes (Other)
  Sender: FDA-Public Use
  Company Number: 2005162034

PATIENT

DRUGS (3)
  1. ZYVOX [Suspect]
     Indication: ILL-DEFINED DISORDER
     Dosage: UNKNOWN, UNKNOWN
  2. PROZAC [Suspect]
     Indication: ILL-DEFINED DISORDER
  3. IMIPRAMINE [Suspect]
     Indication: ILL-DEFINED DISORDER

REACTIONS (1)
  - SEROTONIN SYNDROME [None]
